FAERS Safety Report 9279028 (Version 1)
Quarter: 2013Q2

REPORT INFORMATION
  Report Type: Spontaneous
  Country: US (occurrence: US)
  Receive Date: 20130508
  Receipt Date: 20130508
  Transmission Date: 20140414
  Serious: Yes (Hospitalization)
  Sender: FDA-Public Use
  Company Number: US-ACTELION-A-US2013-82781

PATIENT
  Age: 58 Year
  Sex: Female

DRUGS (6)
  1. TRACLEER [Suspect]
     Indication: PULMONARY HYPERTENSION
     Dosage: 62.5 MG, BID
     Route: 048
     Dates: start: 20130423
  2. HEPARIN [Concomitant]
  3. SILDENAFIL [Concomitant]
  4. DOCUSATE [Concomitant]
  5. NEPHRO-VITE [Concomitant]
  6. ROBITUSSIN [Concomitant]

REACTIONS (1)
  - Heparin-induced thrombocytopenia [Not Recovered/Not Resolved]
